FAERS Safety Report 21336395 (Version 1)
Quarter: 2022Q3

REPORT INFORMATION
  Report Type: Spontaneous
  Country: FR (occurrence: FR)
  Receive Date: 20220915
  Receipt Date: 20220915
  Transmission Date: 20221027
  Serious: Yes (Life-Threatening)
  Sender: FDA-Public Use
  Company Number: None

PATIENT
  Age: 71 Year
  Sex: Male
  Weight: 70 kg

DRUGS (9)
  1. DOCETAXEL [Suspect]
     Active Substance: DOCETAXEL
     Indication: Prostate cancer
     Dosage: DOCETAXEL , UNIT DOSE : 117 MG  , FREQUENCY TIME : 3  WEEKS  , DURATION : 190 DAYS
     Dates: start: 20210419, end: 20211026
  2. BACTRIM [Suspect]
     Active Substance: SULFAMETHOXAZOLE\TRIMETHOPRIM
     Indication: Pneumocystis jirovecii pneumonia
     Dosage: UNIT DOSE : 3 DF  , FREQUENCY TIME :1 DAY   , DURATION : 10 DAYS
     Dates: start: 20211117, end: 20211127
  3. DOLIPRANE [Suspect]
     Active Substance: ACETAMINOPHEN
     Indication: Pyrexia
     Dosage: FORM STRENGTH : 500 MG , UNIT DOSE : 2 DF   , FREQUENCY TIME : 4 DAYS  , DURATION : 19 DAYS
     Dates: start: 20211111, end: 20211130
  4. PEMBROLIZUMAB [Suspect]
     Active Substance: PEMBROLIZUMAB
     Indication: Prostate cancer
     Dosage: UNIT DOSE : 200 MG  , FREQUENCY TIME : 3 WEEKS  , DURATION : 190 DAYS
     Dates: start: 20210419, end: 20211026
  5. OROCAL [Concomitant]
     Indication: Product used for unknown indication
  6. FENOFIBRATE [Concomitant]
     Active Substance: FENOFIBRATE
     Indication: Product used for unknown indication
  7. METOCLOPRAMIDE [Concomitant]
     Active Substance: METOCLOPRAMIDE
     Indication: Product used for unknown indication
  8. LOVENOX [Concomitant]
     Active Substance: ENOXAPARIN SODIUM
     Indication: Product used for unknown indication
  9. PANTOPRAZOLE [Concomitant]
     Active Substance: PANTOPRAZOLE
     Indication: Product used for unknown indication

REACTIONS (2)
  - Haemophagocytic lymphohistiocytosis [Recovering/Resolving]
  - Drug reaction with eosinophilia and systemic symptoms [Recovering/Resolving]

NARRATIVE: CASE EVENT DATE: 20211127
